FAERS Safety Report 6524549-0 (Version None)
Quarter: 2010Q1

REPORT INFORMATION
  Report Type: 
  Country: None (occurrence: None)
  Receive Date: 20100104
  Receipt Date: 20091228
  Transmission Date: 20100710
  Serious: Yes (Hospitalization)
  Sender: FDA-Public Use
  Company Number: JP-ROCHE-676859

PATIENT
  Sex: Male
  Weight: 166 kg

DRUGS (1)
  1. PEGASYS [Suspect]
     Route: 058
     Dates: start: 20090918, end: 20091013

REACTIONS (2)
  - OPHTHALMOPLEGIA [None]
  - SINUSITIS [None]
